FAERS Safety Report 18359954 (Version 1)
Quarter: 2020Q4

REPORT INFORMATION
  Report Type: Spontaneous
  Country: US (occurrence: US)
  Receive Date: 20201008
  Receipt Date: 20201008
  Transmission Date: 20210114
  Serious: Yes (Death)
  Sender: FDA-Public Use
  Company Number: None

PATIENT
  Age: 49 Year
  Sex: Female

DRUGS (3)
  1. MYCOPHENOLATE 500MG TAB-DUPE TO RCT-850342 [Suspect]
     Active Substance: MYCOPHENOLATE MOFETIL
     Route: 048
     Dates: start: 20180711, end: 20200910
  2. DOCFETILIDE [Concomitant]
  3. TADALAFIL 20MG TAB [Suspect]
     Active Substance: TADALAFIL
     Indication: SYSTEMIC SCLERODERMA
     Route: 048
     Dates: start: 20190822, end: 20200910

REACTIONS (1)
  - Death [None]

NARRATIVE: CASE EVENT DATE: 20200910
